FAERS Safety Report 9957101 (Version 1)
Quarter: 2014Q1

REPORT INFORMATION
  Report Type: Spontaneous
  Country: US (occurrence: US)
  Receive Date: 20140304
  Receipt Date: 20140304
  Transmission Date: 20141002
  Serious: No
  Sender: FDA-Public Use
  Company Number: US-ABBVIE-13P-163-1099624-00

PATIENT
  Age: 27 Year
  Sex: Male
  Weight: 118.95 kg

DRUGS (6)
  1. HUMIRA [Suspect]
     Indication: CROHN^S DISEASE
     Dates: start: 201302
  2. FIBRATE [Concomitant]
     Indication: DEPRESSION
  3. FIBRATE [Concomitant]
     Indication: ANXIETY
  4. SEROQUEL [Concomitant]
     Indication: ANXIETY
  5. SEROQUEL [Concomitant]
     Indication: DEPRESSION
  6. GUANIDINE [Concomitant]
     Indication: ANXIETY

REACTIONS (3)
  - Dysgeusia [Not Recovered/Not Resolved]
  - Headache [Not Recovered/Not Resolved]
  - Injection site pain [Not Recovered/Not Resolved]
